FAERS Safety Report 25833128 (Version 1)
Quarter: 2025Q3

REPORT INFORMATION
  Report Type: Spontaneous
  Country: US (occurrence: US)
  Receive Date: 20250922
  Receipt Date: 20250922
  Transmission Date: 20251020
  Serious: No
  Sender: PFIZER
  Company Number: US-PFIZER INC-202500184534

PATIENT
  Age: 72 Year
  Sex: Male
  Weight: 80.29 kg

DRUGS (1)
  1. CIBINQO [Suspect]
     Active Substance: ABROCITINIB
     Indication: Eczema
     Dosage: 200 MG, 1X/DAY
     Route: 048
     Dates: start: 202502

REACTIONS (6)
  - Rash [Not Recovered/Not Resolved]
  - Skin exfoliation [Unknown]
  - Trichorrhexis [Unknown]
  - Folliculitis [Unknown]
  - Skin lesion [Unknown]
  - Skin hyperpigmentation [Unknown]

NARRATIVE: CASE EVENT DATE: 20250801
